FAERS Safety Report 5773004-4 (Version None)
Quarter: 2008Q2

REPORT INFORMATION
  Report Type: 
  Country: None (occurrence: None)
  Receive Date: 20080613
  Receipt Date: 20080603
  Transmission Date: 20081010
  Serious: Yes (Other)
  Sender: FDA-Public Use
  Company Number: BR-PFIZER INC-2008047898

PATIENT
  Sex: Male
  Weight: 100 kg

DRUGS (5)
  1. CARDURAN XL [Suspect]
     Indication: URINARY INCONTINENCE
     Route: 048
  2. CARDURAN XL [Suspect]
     Indication: PROSTATOMEGALY
  3. ATENOLOL [Concomitant]
  4. SYNTHROID [Concomitant]
  5. SIMVASTATIN [Concomitant]

REACTIONS (6)
  - BLOOD PRESSURE DECREASED [None]
  - BLOOD PRESSURE INCREASED [None]
  - NOCTURIA [None]
  - OLIGURIA [None]
  - SLEEP DISORDER [None]
  - WRONG TECHNIQUE IN DRUG USAGE PROCESS [None]
